FAERS Safety Report 19179162 (Version 1)
Quarter: 2021Q2

REPORT INFORMATION
  Report Type: Report from Study
  Country: DE (occurrence: DE)
  Receive Date: 20210426
  Receipt Date: 20210426
  Transmission Date: 20210717
  Serious: Yes (Other)
  Sender: FDA-Public Use
  Company Number: DE-PFIZER INC-2021451585

PATIENT
  Age: 63 Year
  Sex: Female

DRUGS (8)
  1. METOCLOPRAMIDE. [Concomitant]
     Active Substance: METOCLOPRAMIDE
     Indication: PROPHYLAXIS OF NAUSEA AND VOMITING
     Route: 048
  2. CIPROFLOXACIN. [Concomitant]
     Active Substance: CIPROFLOXACIN
     Indication: ANTIBIOTIC PROPHYLAXIS
     Dosage: 200 MG, 3X/DAY
     Route: 042
  3. DOXORUBICIN HCL [Suspect]
     Active Substance: DOXORUBICIN HYDROCHLORIDE
     Indication: CHOLANGIOCARCINOMA
     Dosage: 50 MG/M2
  4. TROPISETRON [Concomitant]
     Active Substance: TROPISETRON
     Indication: ANTIEMETIC SUPPORTIVE CARE
     Dosage: 5 MG
     Route: 042
  5. METRONIDAZOLE. [Concomitant]
     Active Substance: METRONIDAZOLE
     Indication: ANTIBIOTIC PROPHYLAXIS
     Dosage: 500 MG, 3X/DAY
     Route: 042
  6. GEMCITABINE. [Suspect]
     Active Substance: GEMCITABINE
     Indication: CHOLANGIOCARCINOMA
     Dosage: 1000 MG/M2, ONCE A WEEK OVER 30 MIN FOR 3 CONSECUTIVE WEEKS FOLLOWED BY A PAUSE OF ONE WEEK
     Route: 042
  7. CISPLATIN. [Suspect]
     Active Substance: CISPLATIN
     Indication: CHOLANGIOCARCINOMA
     Dosage: 50 MG/M2
  8. DEXAMETHASONE. [Concomitant]
     Active Substance: DEXAMETHASONE
     Dosage: 24 MG
     Route: 042

REACTIONS (1)
  - Cholestasis [Unknown]
